FAERS Safety Report 9717040 (Version 1)
Quarter: 2013Q4

REPORT INFORMATION
  Report Type: Spontaneous
  Country: US (occurrence: US)
  Receive Date: 20131127
  Receipt Date: 20131127
  Transmission Date: 20140711
  Serious: No
  Sender: FDA-Public Use
  Company Number: US-GILEAD-2009-0020705

PATIENT
  Sex: Female

DRUGS (13)
  1. LETAIRIS [Suspect]
     Indication: PULMONARY ARTERIAL HYPERTENSION
     Route: 048
     Dates: start: 20080723, end: 20090304
  2. TOPROL XL [Concomitant]
  3. DIGOXIN [Concomitant]
  4. BENICAR [Concomitant]
  5. COUMADIN [Concomitant]
  6. FUROSEMIDE [Concomitant]
  7. ATIVAN [Concomitant]
  8. PREDNISONE [Concomitant]
  9. MELOXICAM [Concomitant]
  10. STARLIX [Concomitant]
  11. PROPOXYPHENE [Concomitant]
  12. SYNTHROID [Concomitant]
  13. KLOR-CON [Concomitant]

REACTIONS (1)
  - Anaemia [Unknown]
